FAERS Safety Report 17872601 (Version 1)
Quarter: 2020Q2

REPORT INFORMATION
  Report Type: Spontaneous
  Country: RU (occurrence: RU)
  Receive Date: 20200608
  Receipt Date: 20200608
  Transmission Date: 20200714
  Serious: Yes (Hospitalization, Other)
  Sender: FDA-Public Use
  Company Number: RU-ROCHE-2615752

PATIENT
  Age: 64 Year
  Sex: Male

DRUGS (7)
  1. TECENTRIQ [Suspect]
     Active Substance: ATEZOLIZUMAB
     Route: 065
     Dates: start: 20191211, end: 20191211
  2. TECENTRIQ [Suspect]
     Active Substance: ATEZOLIZUMAB
     Route: 065
     Dates: start: 20200106, end: 20200106
  3. ETOPOSIDE. [Concomitant]
     Active Substance: ETOPOSIDE
     Indication: SMALL CELL LUNG CANCER
  4. CARBOPLATIN. [Concomitant]
     Active Substance: CARBOPLATIN
     Indication: SMALL CELL LUNG CANCER
  5. FRAXIPARIN [Concomitant]
     Active Substance: NADROPARIN CALCIUM
     Dosage: 0.6
     Route: 065
  6. TECENTRIQ [Suspect]
     Active Substance: ATEZOLIZUMAB
     Indication: SMALL CELL LUNG CANCER
     Route: 065
     Dates: start: 20191121, end: 20191121
  7. TECENTRIQ [Suspect]
     Active Substance: ATEZOLIZUMAB
     Route: 065
     Dates: start: 20200401, end: 20200401

REACTIONS (5)
  - Vena cava thrombosis [Unknown]
  - Thrombosis [Unknown]
  - Dyspnoea [Unknown]
  - Loss of consciousness [Unknown]
  - Swelling [Unknown]

NARRATIVE: CASE EVENT DATE: 202005
